FAERS Safety Report 17807106 (Version 1)
Quarter: 2020Q2

REPORT INFORMATION
  Report Type: Spontaneous
  Country: US (occurrence: US)
  Receive Date: 20200520
  Receipt Date: 20200520
  Transmission Date: 20200714
  Serious: Yes (Hospitalization)
  Sender: FDA-Public Use
  Company Number: None

PATIENT
  Age: 67 Year
  Sex: Female
  Weight: 103.5 kg

DRUGS (3)
  1. LENALIDOMIDE (CC-5013) [Suspect]
     Active Substance: LENALIDOMIDE
     Dates: end: 20190312
  2. DEXAMETHASONE. [Concomitant]
     Active Substance: DEXAMETHASONE
  3. VELCADE [Suspect]
     Active Substance: BORTEZOMIB
     Dates: end: 20170620

REACTIONS (9)
  - Rash [None]
  - Fungal infection [None]
  - Cellulitis [None]
  - Abdominal pain [None]
  - Disease progression [None]
  - Drug eruption [None]
  - Therapy interrupted [None]
  - Skin ulcer [None]
  - Treatment failure [None]

NARRATIVE: CASE EVENT DATE: 20190321
